FAERS Safety Report 9434893 (Version 1)
Quarter: 2013Q3

REPORT INFORMATION
  Report Type: Report from Study
  Country: US (occurrence: US)
  Receive Date: 20130801
  Receipt Date: 20130801
  Transmission Date: 20140515
  Serious: Yes (Hospitalization)
  Sender: FDA-Public Use
  Company Number: US-EISAI INC-E7272-00200-CLI-US

PATIENT
  Sex: Female

DRUGS (1)
  1. ONTAK [Suspect]
     Indication: MYCOSIS FUNGOIDES
     Route: 041

REACTIONS (3)
  - Tumour lysis syndrome [Recovered/Resolved]
  - Nausea [Unknown]
  - Vomiting [Unknown]
